FAERS Safety Report 23779079 (Version 2)
Quarter: 2024Q2

REPORT INFORMATION
  Report Type: Report from Study
  Country: US (occurrence: None)
  Receive Date: 20240424
  Receipt Date: 20240607
  Transmission Date: 20240717
  Serious: Yes (Death, Other)
  Sender: FDA-Public Use
  Company Number: 2024A094757

PATIENT
  Age: 27081 Day
  Sex: Male

DRUGS (1)
  1. CALQUENCE [Suspect]
     Active Substance: ACALABRUTINIB
     Route: 048

REACTIONS (3)
  - Death [Fatal]
  - Leukaemia [Unknown]
  - Influenza [Unknown]

NARRATIVE: CASE EVENT DATE: 20240412
